FAERS Safety Report 7710858-6 (Version None)
Quarter: 2011Q3

REPORT INFORMATION
  Report Type: 
  Country: None (occurrence: None)
  Receive Date: 20110825
  Receipt Date: 20110816
  Transmission Date: 20111222
  Serious: Yes (Hospitalization)
  Sender: FDA-Public Use
  Company Number: ES-GENENTECH-320138

PATIENT
  Sex: Male
  Weight: 90 kg

DRUGS (5)
  1. LENALIDOMIDE [Suspect]
     Indication: CHRONIC LYMPHOCYTIC LEUKAEMIA
     Dosage: 10 MG, UNK
     Route: 048
     Dates: start: 20110314, end: 20110601
  2. LENALIDOMIDE [Suspect]
     Dosage: 5 MG, UNK
     Route: 048
     Dates: start: 20110627, end: 20110724
  3. RITUXIMAB [Suspect]
     Indication: CHRONIC LYMPHOCYTIC LEUKAEMIA
     Dosage: 375 MG/M2, UNK
     Route: 042
     Dates: start: 20110316
  4. RITUXIMAB [Suspect]
     Dosage: UNK
     Route: 042
     Dates: start: 20110627, end: 20110724
  5. RITUXIMAB [Suspect]
     Dosage: 500 MG/M2, UNK
     Route: 042
     Dates: end: 20110516

REACTIONS (3)
  - BILIARY COLIC [None]
  - FEBRILE NEUTROPENIA [None]
  - CHOLECYSTITIS [None]
